FAERS Safety Report 13869909 (Version 19)
Quarter: 2023Q1

REPORT INFORMATION
  Report Type: Spontaneous
  Country: US (occurrence: US)
  Receive Date: 20170815
  Receipt Date: 20230224
  Transmission Date: 20230417
  Serious: Yes (Hospitalization, Other)
  Sender: FDA-Public Use
  Company Number: US-PFIZER INC-2017346173

PATIENT
  Age: 67 Year
  Sex: Female

DRUGS (1)
  1. ELELYSO [Suspect]
     Active Substance: TALIGLUCERASE ALFA
     Indication: Gaucher^s disease
     Dosage: UNK, CYCLIC (ONCE EVERY OTHER WEEK)
     Route: 042
     Dates: start: 2015

REACTIONS (27)
  - Pelvic fracture [Not Recovered/Not Resolved]
  - Clostridium difficile infection [Recovering/Resolving]
  - Chest injury [Recovered/Resolved]
  - Multiple fractures [Recovering/Resolving]
  - Nervousness [Recovered/Resolved]
  - Ankle fracture [Unknown]
  - Lower limb fracture [Not Recovered/Not Resolved]
  - Fall [Recovered/Resolved]
  - Drug ineffective [Unknown]
  - Product dose omission issue [Unknown]
  - Incorrect dose administered [Unknown]
  - Arthralgia [Unknown]
  - Fatigue [Recovered/Resolved]
  - Anxiety [Recovered/Resolved]
  - Contusion [Recovered/Resolved]
  - Pain [Not Recovered/Not Resolved]
  - Fibromyalgia [Unknown]
  - Osteoarthritis [Unknown]
  - Rash [Not Recovered/Not Resolved]
  - Skin lesion [Recovered/Resolved]
  - Rash pruritic [Recovered/Resolved]
  - Purpura [Recovered/Resolved]
  - Coagulopathy [Unknown]
  - Malaise [Unknown]
  - Anaemia [Unknown]
  - Cystitis [Not Recovered/Not Resolved]
  - Bradykinesia [Unknown]

NARRATIVE: CASE EVENT DATE: 20170501
